FAERS Safety Report 9185616 (Version 1)
Quarter: 2013Q1

REPORT INFORMATION
  Report Type: Spontaneous
  Country: US (occurrence: US)
  Receive Date: 20130325
  Receipt Date: 20130325
  Transmission Date: 20140127
  Serious: No
  Sender: FDA-Public Use
  Company Number: US-009507513-1303USA011692

PATIENT
  Age: 52 Year
  Sex: Male

DRUGS (1)
  1. SAPHRIS [Suspect]
     Indication: SCHIZOPHRENIA
     Dosage: 5 MG, HS

REACTIONS (4)
  - Sleep terror [Unknown]
  - Nightmare [Unknown]
  - Somnolence [Unknown]
  - Sedation [Unknown]
